FAERS Safety Report 9927777 (Version 1)
Quarter: 2014Q1

REPORT INFORMATION
  Report Type: Report from Study
  Country: US (occurrence: US)
  Receive Date: 20140227
  Receipt Date: 20140227
  Transmission Date: 20141002
  Serious: Yes (Other)
  Sender: FDA-Public Use
  Company Number: US-ROCHE-1335507

PATIENT
  Sex: Male

DRUGS (4)
  1. LUCENTIS [Suspect]
     Indication: PRODUCT USED FOR UNKNOWN INDICATION
     Route: 050
  2. AVASTIN [Suspect]
     Indication: PRODUCT USED FOR UNKNOWN INDICATION
     Dosage: OU
     Route: 065
  3. OFLOXACIN [Concomitant]
     Dosage: OS
     Route: 065
  4. AKTEN [Concomitant]

REACTIONS (10)
  - Macular oedema [Recovered/Resolved]
  - Visual acuity reduced transiently [Unknown]
  - Visual impairment [Unknown]
  - Hypermetropia [Unknown]
  - Astigmatism [Unknown]
  - Presbyopia [Unknown]
  - Dry eye [Unknown]
  - Vitreous haemorrhage [Unknown]
  - Visual acuity reduced [Unknown]
  - Pinguecula [Unknown]
